FAERS Safety Report 5164204-5 (Version None)
Quarter: 2006Q4

REPORT INFORMATION
  Report Type: 
  Country: None (occurrence: None)
  Receive Date: 20060918
  Receipt Date: 20050927
  Transmission Date: 20070319
  Serious: Yes (Hospitalization)
  Sender: FDA-Public Use
  Company Number: US-JNJFOC-20050805968

PATIENT
  Age: 27 Year
  Sex: Male

DRUGS (4)
  1. TOPAMAX [Suspect]
     Indication: CONVULSION
     Dates: start: 20020101
  2. TOPAMAX [Suspect]
     Indication: EPILEPSY
     Dosage: SEE IMAGE
     Route: 048
     Dates: start: 20000101, end: 20000101
  3. TOPAMAX [Suspect]
     Indication: EPILEPSY
     Dosage: SEE IMAGE
     Route: 048
     Dates: start: 20040101, end: 20040101
  4. KEPPRA [Concomitant]

REACTIONS (5)
  - BIPOLAR DISORDER [None]
  - CONVULSION [None]
  - INSOMNIA [None]
  - PSYCHOTIC DISORDER [None]
  - WEIGHT DECREASED [None]
